FAERS Safety Report 10506686 (Version 1)
Quarter: 2014Q4

REPORT INFORMATION
  Report Type: Spontaneous
  Country: DE (occurrence: None)
  Receive Date: 20141007
  Receipt Date: 20141007
  Transmission Date: 20150528
  Serious: Yes (Hospitalization)
  Sender: FDA-Public Use
  Company Number: 2014HINLIT0905

PATIENT
  Age: 21 Year
  Sex: Female

DRUGS (7)
  1. AMLODIPINE [Suspect]
     Active Substance: AMLODIPINE BESYLATE
     Indication: SUICIDE ATTEMPT
     Dosage: 300 MG, UNK (60 TABLETS OF 5-MG),  UNKNOWN
  2. CARVEDILOL (CARVEDILOL) [Suspect]
     Active Substance: CARVEDILOL
     Indication: SUICIDE ATTEMPT
     Dosage: 1750 MG, UNK (70 TABLETS OF 25 MG), UNKNOWN
  3. GABAPENTIN (GABAPENTIN) [Suspect]
     Active Substance: GABAPENTIN
     Indication: SUICIDE ATTEMPT
     Dosage: 16000 MG, UNK (40 TABLETS OF 400-MG)
  4. NICOTINIC ACID (NICOTINIC ACID) [Suspect]
     Active Substance: NIACIN
     Indication: SUICIDE ATTEMPT
     Dosage: 28000 MG, UNK (56 TABLETS OF 500 MG), UNKNOWN
  5. KETOPROFEN (KETOPROFEN) [Suspect]
     Active Substance: KETOPROFEN
     Indication: SUICIDE ATTEMPT
     Dosage: 1500 MG, UNK (30 TABLETS OF 50 MG)
  6. TORSEMIDE (TORSEMIDE) UNKNOWN [Suspect]
     Active Substance: TORSEMIDE
     Indication: SUICIDE ATTEMPT
     Dosage: 500 MG, UNK (50 TABLETS OF 10 MG), UNKNOWN
  7. AMITRIPTYLINE (AMITRIPTYLINE) [Suspect]
     Active Substance: AMITRIPTYLINE
     Indication: SUICIDE ATTEMPT
     Dosage: 6000 MG, UNK (60 TABLETS OF 100 MG), UNKNOWN

REACTIONS (11)
  - Toxicity to various agents [None]
  - Loss of consciousness [None]
  - Bradycardia [None]
  - Intentional overdose [None]
  - Cardiac failure [None]
  - Pulse absent [None]
  - Sinoatrial block [None]
  - Nodal rhythm [None]
  - Compartment syndrome [None]
  - Suicide attempt [None]
  - Femoral artery dissection [None]
